FAERS Safety Report 16420992 (Version 1)
Quarter: 2019Q2

REPORT INFORMATION
  Report Type: Report from Study
  Country: US (occurrence: US)
  Receive Date: 20190612
  Receipt Date: 20190612
  Transmission Date: 20190711
  Serious: Yes (Other)
  Sender: FDA-Public Use
  Company Number: US-BAYER-2019-106060

PATIENT

DRUGS (1)
  1. CORICIDNE MAX STRENGTH PB (ACETAMINOPHEN\CHLORPHENIRAMINE MALEATE) [Suspect]
     Active Substance: ACETAMINOPHEN\CHLORPHENIRAMINE MALEATE
     Dosage: UNK

REACTIONS (1)
  - Drug abuse [Unknown]
